FAERS Safety Report 26172742 (Version 1)
Quarter: 2025Q4

REPORT INFORMATION
  Report Type: Spontaneous
  Country: EU (occurrence: EU)
  Receive Date: 20251218
  Receipt Date: 20251218
  Transmission Date: 20260118
  Serious: Yes (Other)
  Sender: AUROBINDO
  Company Number: EU-AFSSAPS-DJ2025001883

PATIENT
  Age: 31 Year
  Sex: Male
  Weight: 70 kg

DRUGS (2)
  1. OXALIPLATIN [Suspect]
     Active Substance: OXALIPLATIN
     Indication: Colorectal cancer
     Dosage: C3
     Dates: start: 20251001, end: 20251001
  2. XELODA [Suspect]
     Active Substance: CAPECITABINE
     Indication: Colorectal cancer
     Dosage: 3600 MILLIGRAM, ONCE A DAY
     Route: 061
     Dates: start: 20251002, end: 20251016

REACTIONS (1)
  - Hepatic cytolysis [Recovering/Resolving]

NARRATIVE: CASE EVENT DATE: 20251020
